FAERS Safety Report 23193352 (Version 3)
Quarter: 2023Q4

REPORT INFORMATION
  Report Type: Other
  Country: US (occurrence: US)
  Receive Date: 20231116
  Receipt Date: 20231118
  Transmission Date: 20240109
  Serious: No
  Sender: FDA-Public Use
  Company Number: US-TRAVERE-2023TVT00434

PATIENT
  Age: 60 Year
  Sex: Female

DRUGS (3)
  1. FILSPARI [Suspect]
     Active Substance: SPARSENTAN
     Indication: IgA nephropathy
     Dosage: 200 MG
     Route: 048
  2. FILSPARI [Suspect]
     Active Substance: SPARSENTAN
     Dosage: 200 MG
     Route: 048
  3. FILSPARI [Suspect]
     Active Substance: SPARSENTAN
     Dosage: 200 MG
     Route: 048

REACTIONS (2)
  - Dyspepsia [None]
  - Hypotension [Unknown]
